FAERS Safety Report 25068972 (Version 4)
Quarter: 2025Q2

REPORT INFORMATION
  Report Type: Spontaneous
  Country: CA (occurrence: CA)
  Receive Date: 20250312
  Receipt Date: 20250520
  Transmission Date: 20250716
  Serious: No
  Sender: PFIZER
  Company Number: CA-PFIZER INC-202500050473

PATIENT
  Age: 64 Year
  Sex: Male

DRUGS (2)
  1. ABRILADA [Suspect]
     Active Substance: ADALIMUMAB-AFZB
     Indication: Colitis ulcerative
     Route: 058
     Dates: start: 20240712, end: 202410
  2. PREDNISONE [Concomitant]
     Active Substance: PREDNISONE

REACTIONS (2)
  - Device leakage [Unknown]
  - Drug dose omission by device [Unknown]

NARRATIVE: CASE EVENT DATE: 20250206
